FAERS Safety Report 8179322-7 (Version None)
Quarter: 2012Q1

REPORT INFORMATION
  Report Type: 
  Country: None (occurrence: None)
  Receive Date: 20120229
  Receipt Date: 20120229
  Transmission Date: 20120608
  Serious: Yes (Other)
  Sender: FDA-Public Use
  Company Number: None

PATIENT
  Age: 26 Year
  Sex: Female
  Weight: 63.5036 kg

DRUGS (1)
  1. LANSOPRAZOLE [Suspect]
     Dosage: 30 MG. 1 DAILY W/O FOOD ORAL
     Route: 048

REACTIONS (2)
  - MUSCLE SPASMS [None]
  - DIARRHOEA [None]
